FAERS Safety Report 11800750 (Version 1)
Quarter: 2015Q4

REPORT INFORMATION
  Report Type: Report from Study
  Country: US (occurrence: US)
  Receive Date: 20151204
  Receipt Date: 20151204
  Transmission Date: 20160305
  Serious: Yes (Death, Hospitalization)
  Sender: FDA-Public Use
  Company Number: GXBR2015US002670

PATIENT
  Sex: Male

DRUGS (3)
  1. ENOXAPARIN SODIUM. [Suspect]
     Active Substance: ENOXAPARIN SODIUM
     Indication: DEEP VEIN THROMBOSIS
     Dosage: 120 MG, QD
     Route: 065
     Dates: start: 20150505
  2. CHEMOTHERAPEUTICS [Concomitant]
     Active Substance: UNSPECIFIED INGREDIENT
     Indication: ADENOCARCINOMA
     Dosage: UNK DF, UNK
     Route: 065
  3. RADIATION [Concomitant]
     Active Substance: RADIATION THERAPY
     Indication: ADENOCARCINOMA
     Dosage: UNK DF, UNK
     Route: 065

REACTIONS (2)
  - Respiratory failure [Fatal]
  - Adenocarcinoma [Fatal]
